FAERS Safety Report 6832220-0 (Version None)
Quarter: 2010Q3

REPORT INFORMATION
  Report Type: 
  Country: None (occurrence: None)
  Receive Date: 20100707
  Receipt Date: 20100625
  Transmission Date: 20110219
  Serious: Yes (Hospitalization, Disabling)
  Sender: FDA-Public Use
  Company Number: 2010MA000317

PATIENT
  Age: 55 Year
  Sex: Female

DRUGS (4)
  1. VENLAFAXINE HCL [Suspect]
     Indication: DEPRESSION
     Dosage: 150 MG;PO
     Route: 048
     Dates: start: 20100421
  2. STELAZINE [Concomitant]
  3. RISPERDAL [Concomitant]
  4. FLUOXETINE HCL [Concomitant]

REACTIONS (3)
  - ABDOMINAL PAIN UPPER [None]
  - ACTIVITIES OF DAILY LIVING IMPAIRED [None]
  - PAIN IN EXTREMITY [None]
